FAERS Safety Report 5807374-5 (Version None)
Quarter: 2008Q3

REPORT INFORMATION
  Report Type: 
  Country: None (occurrence: None)
  Receive Date: 20080711
  Receipt Date: 20080708
  Transmission Date: 20090109
  Serious: Yes (Other)
  Sender: FDA-Public Use
  Company Number: FR-JNJFOC-20080601279

PATIENT
  Sex: Male
  Weight: 65 kg

DRUGS (2)
  1. METHYLPHENIDATE HCL [Suspect]
     Route: 048
  2. METHYLPHENIDATE HCL [Suspect]
     Indication: ATTENTION DEFICIT/HYPERACTIVITY DISORDER
     Route: 048

REACTIONS (7)
  - AGITATION [None]
  - ANOREXIA [None]
  - INSOMNIA [None]
  - MYALGIA [None]
  - NAUSEA [None]
  - ORTHOSTATIC HYPOTENSION [None]
  - VERTIGO [None]
